FAERS Safety Report 8606968-1 (Version None)
Quarter: 2012Q3

REPORT INFORMATION
  Report Type: 
  Country: None (occurrence: None)
  Receive Date: 20120820
  Receipt Date: 20120816
  Transmission Date: 20120928
  Serious: No
  Sender: FDA-Public Use
  Company Number: US-PFIZER INC-2012201246

PATIENT
  Sex: Female

DRUGS (3)
  1. LYRICA [Suspect]
     Indication: INTERVERTEBRAL DISC PROTRUSION
     Dosage: 50 MG, 1X/DAY
  2. LYRICA [Suspect]
     Dosage: UNK
  3. LYRICA [Suspect]
     Dosage: 50 MG, 3X/DAY

REACTIONS (3)
  - HEADACHE [None]
  - DRUG INEFFECTIVE [None]
  - VISION BLURRED [None]
